FAERS Safety Report 8421627-6 (Version None)
Quarter: 2012Q2

REPORT INFORMATION
  Report Type: 
  Country: None (occurrence: None)
  Receive Date: 20120608
  Receipt Date: 20120529
  Transmission Date: 20120825
  Serious: Yes (Hospitalization, Other)
  Sender: FDA-Public Use
  Company Number: IL-AMGEN-ISRSP2012033148

PATIENT
  Age: 69 Year
  Sex: Female

DRUGS (2)
  1. PREDNISONE TAB [Concomitant]
     Dosage: UNK
  2. ETANERCEPT [Suspect]
     Indication: RHEUMATOID ARTHRITIS
     Dosage: SINGLE DOSE
     Dates: start: 20120424

REACTIONS (4)
  - PAIN IN EXTREMITY [None]
  - ASTHENIA [None]
  - HAEMOGLOBIN DECREASED [None]
  - PYREXIA [None]
